FAERS Safety Report 5913578-3 (Version None)
Quarter: 2008Q4

REPORT INFORMATION
  Report Type: 
  Country: None (occurrence: None)
  Receive Date: 20081006
  Receipt Date: 20080922
  Transmission Date: 20090506
  Serious: Yes (Hospitalization)
  Sender: FDA-Public Use
  Company Number: 236051J08USA

PATIENT
  Age: 38 Year
  Sex: Female
  Weight: 93 kg

DRUGS (9)
  1. REBIF [Suspect]
     Indication: MULTIPLE SCLEROSIS
     Dosage: 44 MCG, 3 IN 1 WEEKS, SUBCUTANEOUS
     Route: 058
     Dates: start: 20050523
  2. VICODIN [Concomitant]
  3. ARICEPT [Concomitant]
  4. PRILOSEC [Concomitant]
  5. SYNTHROID [Concomitant]
  6. HYDRODIURIL [Concomitant]
  7. ALBUTEROL (SALBUTAMOL /00139501/) [Concomitant]
  8. RISPERDAL [Concomitant]
  9. EFFEXOR [Concomitant]

REACTIONS (7)
  - ABASIA [None]
  - ARTHRALGIA [None]
  - FAECAL INCONTINENCE [None]
  - FLUID RETENTION [None]
  - MICTURITION URGENCY [None]
  - URINARY INCONTINENCE [None]
  - URINARY RETENTION [None]
